FAERS Safety Report 8979026 (Version 1)
Quarter: 2012Q4

REPORT INFORMATION
  Report Type: Spontaneous
  Country: US (occurrence: None)
  Receive Date: 20121218
  Receipt Date: 20121218
  Transmission Date: 20130627
  Serious: Yes (Other)
  Sender: FDA-Public Use
  Company Number: None

PATIENT

DRUGS (1)
  1. FINASTERIDE [Suspect]
     Indication: BPH

REACTIONS (6)
  - Penile size reduced [None]
  - Nipple pain [None]
  - Breast enlargement [None]
  - Libido decreased [None]
  - Orgasmic sensation decreased [None]
  - Semen volume decreased [None]
